FAERS Safety Report 12189282 (Version 2)
Quarter: 2016Q2

REPORT INFORMATION
  Report Type: Spontaneous
  Country: US (occurrence: US)
  Receive Date: 20160317
  Receipt Date: 20160405
  Transmission Date: 20160815
  Serious: Yes (Death, Other)
  Sender: FDA-Public Use
  Company Number: US-TEVA-644171USA

PATIENT
  Age: 80 Year
  Sex: Female

DRUGS (3)
  1. METHYLPREDNISOLONE. [Suspect]
     Active Substance: METHYLPREDNISOLONE
     Indication: SACROILIITIS
     Dosage: 1ML SOLUTION (40MG)
     Route: 014
  2. LIDOCAINE. [Concomitant]
     Active Substance: LIDOCAINE
     Dosage: 1ML (CONC: 1%)
     Route: 050
  3. BUPIVACAINE. [Concomitant]
     Active Substance: BUPIVACAINE
     Dosage: 2ML (CONC: 0.5%)
     Route: 050

REACTIONS (5)
  - Acute kidney injury [Not Recovered/Not Resolved]
  - Sepsis [Fatal]
  - Haemodynamic instability [Not Recovered/Not Resolved]
  - Multiple organ dysfunction syndrome [Not Recovered/Not Resolved]
  - Gas gangrene [Not Recovered/Not Resolved]
